FAERS Safety Report 6385882-9 (Version None)
Quarter: 2009Q4

REPORT INFORMATION
  Report Type: 
  Country: None (occurrence: None)
  Receive Date: 20091002
  Receipt Date: 20090923
  Transmission Date: 20100525
  Serious: Yes (Hospitalization)
  Sender: FDA-Public Use
  Company Number: US-AMGEN-US361264

PATIENT
  Sex: Male
  Weight: 75 kg

DRUGS (2)
  1. NEUPOGEN [Suspect]
     Indication: PERIPHERAL BLOOD STEM CELL APHERESIS
     Route: 058
     Dates: start: 20070802, end: 20070806
  2. NEUPOGEN [Suspect]
     Route: 058
     Dates: start: 20011202, end: 20011206

REACTIONS (3)
  - LYMPHADENOPATHY [None]
  - NECK PAIN [None]
  - VASCULITIS [None]
